FAERS Safety Report 10190852 (Version 2)
Quarter: 2014Q2

REPORT INFORMATION
  Report Type: Spontaneous
  Country: CA (occurrence: CA)
  Receive Date: 20140523
  Receipt Date: 20140523
  Transmission Date: 20141212
  Serious: Yes (Hospitalization, Other)
  Sender: FDA-Public Use
  Company Number: CA-AMGEN-CANSP2014031823

PATIENT
  Age: 80 Year
  Sex: Female
  Weight: 61.68 kg

DRUGS (13)
  1. PROLIA [Suspect]
     Indication: OSTEOPOROSIS POSTMENOPAUSAL
     Dosage: 60 MG, Q6MO
     Route: 058
     Dates: start: 20111101
  2. PROLIA [Suspect]
     Dosage: UNK
     Route: 058
  3. PROLIA [Suspect]
     Dosage: UNK
     Route: 058
  4. PROLIA [Suspect]
     Dosage: UNK
     Route: 058
  5. PROLIA [Suspect]
     Dosage: UNK
     Route: 058
  6. PROLIA [Suspect]
     Dosage: UNK
  7. APO ATORVASTATIN [Concomitant]
     Indication: BLOOD CHOLESTEROL INCREASED
     Dosage: UNK
  8. NOVO-CLONIDINE [Concomitant]
     Indication: HOT FLUSH
     Dosage: UNK
  9. CALCIUM [Concomitant]
     Dosage: UNK
  10. VITAMIN D                          /00107901/ [Concomitant]
     Dosage: UNK
  11. LOSEC                              /00661201/ [Concomitant]
     Indication: DYSPLASIA
     Dosage: 20 MG, UNK
     Route: 048
     Dates: start: 20040513
  12. CLONIDINE [Concomitant]
     Indication: HOT FLUSH
     Dosage: 0.5 MG, BID
     Dates: start: 20030203
  13. LIPITOR [Concomitant]
     Indication: BLOOD CHOLESTEROL INCREASED
     Dosage: 20 MG, QD
     Route: 048
     Dates: start: 20021002

REACTIONS (4)
  - Colon cancer [Not Recovered/Not Resolved]
  - Lymphoma [Not Recovered/Not Resolved]
  - Rectal haemorrhage [Unknown]
  - Anaemia [Unknown]
